FAERS Safety Report 5342288-9 (Version None)
Quarter: 2007Q2

REPORT INFORMATION
  Report Type: 
  Country: None (occurrence: None)
  Receive Date: 20070601
  Receipt Date: 20070529
  Transmission Date: 20071010
  Serious: Yes (Death)
  Sender: FDA-Public Use
  Company Number: US-JNJFOC-20070406453

PATIENT
  Sex: Male
  Weight: 95.26 kg

DRUGS (6)
  1. HALOPERIDOL [Suspect]
     Indication: AGITATION
     Route: 030
  2. RISPERDAL [Suspect]
     Indication: SCHIZOAFFECTIVE DISORDER
     Route: 048
  3. ATIVAN [Concomitant]
     Indication: AGITATION
     Route: 030
  4. DEPAKOTE [Concomitant]
     Indication: SCHIZOAFFECTIVE DISORDER
     Route: 048
  5. HYDROCHLOROTHIAZIDE [Concomitant]
     Indication: HYPERTENSION
  6. FELODIPINE [Concomitant]
     Indication: HYPERTENSION

REACTIONS (1)
  - ARRHYTHMIA [None]
